FAERS Safety Report 7289057-0 (Version None)
Quarter: 2011Q1

REPORT INFORMATION
  Report Type: 
  Country: None (occurrence: None)
  Receive Date: 20110211
  Receipt Date: 20110208
  Transmission Date: 20110831
  Serious: Yes (Hospitalization)
  Sender: FDA-Public Use
  Company Number: FR-PFIZER INC-2011027683

PATIENT
  Age: 54 Year
  Sex: Male

DRUGS (12)
  1. ACTOS [Suspect]
     Indication: TYPE 2 DIABETES MELLITUS
     Dosage: 15 MG, 1X/DAY
     Route: 048
  2. CARDENSIEL [Suspect]
     Indication: HYPERTENSION
     Dosage: 10 MG, 2X/DAY
     Route: 048
  3. TRIATEC [Suspect]
     Indication: HYPERTENSION
     Dosage: 10 MG, 1X/DAY
     Route: 048
  4. TAHOR [Concomitant]
     Dosage: 40 MG, 2X/DAY
  5. VICTOZA [Suspect]
     Indication: TYPE 2 DIABETES MELLITUS
     Dosage: 0.6 MG, DAILY
     Route: 058
     Dates: start: 20100501
  6. AMLOR [Suspect]
     Indication: HYPERTENSION
     Dosage: 5 MG, 2X/DAY
     Route: 048
  7. TOPALGIC [Suspect]
     Indication: PAIN
     Dosage: 100 MG, 2X/DAY
     Route: 048
  8. VICTOZA [Suspect]
     Dosage: 1.2 MG, DAILY
     Route: 058
     Dates: start: 20100101
  9. GLUCOPHAGE [Suspect]
     Indication: TYPE 2 DIABETES MELLITUS
     Dosage: 1000 MG, 3X/DAY
     Route: 048
  10. ASPIRIN [Concomitant]
     Dosage: 160 MG, 1X/DAY
  11. IKOREL [Concomitant]
     Dosage: 20 MG, 2X/DAY
  12. VASTAREL [Suspect]
     Indication: HYPERTENSION
     Dosage: 35 MG, 2X/DAY
     Route: 048

REACTIONS (4)
  - FALL [None]
  - MUSCULAR WEAKNESS [None]
  - VISUAL IMPAIRMENT [None]
  - MALAISE [None]
